FAERS Safety Report 5079298-5 (Version None)
Quarter: 2006Q3

REPORT INFORMATION
  Report Type: 
  Country: None (occurrence: None)
  Receive Date: 20060814
  Receipt Date: 20060807
  Transmission Date: 20061208
  Serious: Yes (Hospitalization)
  Sender: FDA-Public Use
  Company Number: PHRM2006FR02284

PATIENT
  Age: 50 Year
  Sex: Male

DRUGS (5)
  1. XANAX [Suspect]
     Dosage: 2 DF, QD
     Route: 048
     Dates: start: 19970101
  2. LOZOL [Suspect]
     Dosage: 1 DF, QD
     Route: 048
  3. DEPAKENE [Suspect]
     Dosage: 2 DF, QD
     Route: 048
     Dates: start: 19920101
  4. SABRIL [Suspect]
     Dosage: 500 MG, BID
     Route: 048
     Dates: start: 19980101
  5. TRILEPTAL [Suspect]
     Dosage: 300 MG, QID
     Route: 048
     Dates: end: 20051009

REACTIONS (5)
  - EPILEPSY [None]
  - FACIAL PALSY [None]
  - HEADACHE [None]
  - HYPERTENSION [None]
  - HYPONATRAEMIA [None]
